FAERS Safety Report 25607893 (Version 1)
Quarter: 2025Q3

REPORT INFORMATION
  Report Type: Spontaneous
  Country: US (occurrence: US)
  Receive Date: 20250725
  Receipt Date: 20250725
  Transmission Date: 20251020
  Serious: Yes (Other)
  Sender: DR REDDYS
  Company Number: US-DRL-USA-USA/2025/07/010844

PATIENT
  Sex: Female

DRUGS (6)
  1. TACROLIMUS [Suspect]
     Active Substance: TACROLIMUS
     Indication: Immunosuppressant drug therapy
  2. HEPARIN [Suspect]
     Active Substance: HEPARIN SODIUM
     Indication: Haemorrhage
  3. RAVULIZUMAB [Suspect]
     Active Substance: RAVULIZUMAB
     Indication: Paroxysmal nocturnal haemoglobinuria
  4. RAVULIZUMAB [Suspect]
     Active Substance: RAVULIZUMAB
     Dates: start: 20230517
  5. RUXOLITINIB [Suspect]
     Active Substance: RUXOLITINIB
     Indication: Polycythaemia vera
  6. ENOXAPARIN [Suspect]
     Active Substance: ENOXAPARIN
     Indication: Polycythaemia vera

REACTIONS (2)
  - Exposure during pregnancy [Unknown]
  - Premature delivery [Unknown]

NARRATIVE: CASE EVENT DATE: 20220101
